FAERS Safety Report 13272095 (Version 1)
Quarter: 2017Q1

REPORT INFORMATION
  Report Type: Other
  Country: DE (occurrence: DE)
  Receive Date: 20170227
  Receipt Date: 20170227
  Transmission Date: 20170428
  Serious: Yes (Hospitalization)
  Sender: FDA-Public Use
  Company Number: DE-SHIRE-DE201703854

PATIENT
  Sex: Male
  Weight: 64.85 kg

DRUGS (1)
  1. REVESTIVE [Suspect]
     Active Substance: TEDUGLUTIDE
     Indication: SHORT-BOWEL SYNDROME
     Dosage: 0.05 MG, UNKNOWN
     Route: 058
     Dates: start: 20161216

REACTIONS (3)
  - Fluid imbalance [Unknown]
  - Electrolyte imbalance [Unknown]
  - Blood glucose abnormal [Unknown]
